APPROVED DRUG PRODUCT: IBUPROFEN
Active Ingredient: IBUPROFEN
Strength: 100MG/5ML
Dosage Form/Route: SUSPENSION;ORAL
Application: A209178 | Product #001 | TE Code: AB
Applicant: AUROBINDO PHARMA LTD
Approved: Feb 16, 2018 | RLD: No | RS: No | Type: RX